FAERS Safety Report 9720384 (Version 2)
Quarter: 2014Q1

REPORT INFORMATION
  Report Type: Spontaneous
  Country: VN (occurrence: VN)
  Receive Date: 20131129
  Receipt Date: 20140304
  Transmission Date: 20141002
  Serious: Yes (Death)
  Sender: FDA-Public Use
  Company Number: VN-ROCHE-1310767

PATIENT
  Sex: Male

DRUGS (2)
  1. CEFTRIAXONE SODIUM [Suspect]
     Indication: PNEUMONIA
     Route: 042
  2. SOLU-MEDROL [Suspect]
     Indication: PNEUMONIA
     Route: 041

REACTIONS (1)
  - Anaphylactic shock [Fatal]
